FAERS Safety Report 21211605 (Version 1)
Quarter: 2022Q3

REPORT INFORMATION
  Report Type: Spontaneous
  Country: CN (occurrence: CN)
  Receive Date: 20220815
  Receipt Date: 20220815
  Transmission Date: 20221027
  Serious: Yes (Hospitalization)
  Sender: FDA-Public Use
  Company Number: CN-ELI_LILLY_AND_COMPANY-CN202208001708

PATIENT
  Age: 79 Year
  Sex: Female
  Weight: 51.4 kg

DRUGS (2)
  1. HUMALOG [Suspect]
     Active Substance: INSULIN LISPRO
     Indication: Diabetes mellitus
     Dosage: 6 U, EACH MORNING
     Route: 058
     Dates: start: 202008
  2. HUMALOG [Suspect]
     Active Substance: INSULIN LISPRO
     Dosage: 8 U, BID
     Route: 058
     Dates: start: 202008

REACTIONS (5)
  - Gastric disorder [Unknown]
  - Presbyopia [Unknown]
  - Blood glucose increased [Unknown]
  - Heart rate increased [Unknown]
  - Hypoglycaemia [Unknown]

NARRATIVE: CASE EVENT DATE: 20220101
